FAERS Safety Report 7884799-8 (Version None)
Quarter: 2011Q4

REPORT INFORMATION
  Report Type: 
  Country: None (occurrence: None)
  Receive Date: 20111102
  Receipt Date: 20111031
  Transmission Date: 20120403
  Serious: Yes (Death, Other)
  Sender: FDA-Public Use
  Company Number: PHHY2011US96038

PATIENT
  Age: 69 Year
  Sex: Female

DRUGS (6)
  1. CEFTRIAXONE [Concomitant]
     Dosage: UNK
     Route: 042
  2. AMIODARONE HCL [Interacting]
     Dosage: UNK
  3. COLCHICINE [Interacting]
     Indication: PERICARDITIS
     Dosage: 0.6 MG, BID
     Route: 048
  4. AMIODARONE HCL [Suspect]
     Indication: ATRIAL FIBRILLATION
     Dosage: 400 MG, TID
     Route: 048
  5. AMOXICILLIN AND CLAVULANATE POTASSIUM [Concomitant]
     Indication: SINUSITIS
     Dosage: UNK
  6. AZITHROMYCIN [Concomitant]
     Indication: PNEUMONIA
     Dosage: UNK

REACTIONS (9)
  - TOXICITY TO VARIOUS AGENTS [None]
  - VOMITING [None]
  - DIARRHOEA [None]
  - WHITE BLOOD CELL DISORDER [None]
  - MULTI-ORGAN FAILURE [None]
  - CARDIOGENIC SHOCK [None]
  - NAUSEA [None]
  - DRUG INTERACTION [None]
  - CARDIAC ARREST [None]
